FAERS Safety Report 8101770-1 (Version None)
Quarter: 2012Q1

REPORT INFORMATION
  Report Type: 
  Country: None (occurrence: None)
  Receive Date: 20120131
  Receipt Date: 20120119
  Transmission Date: 20120608
  Serious: Yes (Other)
  Sender: FDA-Public Use
  Company Number: PHEH2012US000587

PATIENT
  Age: 70 Year
  Sex: Male
  Weight: 148 kg

DRUGS (3)
  1. PREDNISONE TAB [Suspect]
     Indication: PRURITUS
     Dosage: 40 MG, QD
  2. TEKTURNA [Suspect]
     Indication: HYPERTENSION
     Dosage: 300 MG, UNK
     Route: 048
     Dates: start: 20120101
  3. PREDNISONE TAB [Suspect]
     Indication: RASH

REACTIONS (3)
  - HYPERTENSIVE ENCEPHALOPATHY [None]
  - BLOOD PRESSURE INCREASED [None]
  - DRUG INEFFECTIVE [None]
